FAERS Safety Report 22373557 (Version 2)
Quarter: 2023Q2

REPORT INFORMATION
  Report Type: Report from Study
  Country: TR (occurrence: None)
  Receive Date: 20230526
  Receipt Date: 20230529
  Transmission Date: 20230721
  Serious: Yes (Death, Hospitalization)
  Sender: FDA-Public Use
  Company Number: TR-ROCHE-3355455

PATIENT
  Age: 76 Year
  Sex: Female
  Weight: 53 kg

DRUGS (15)
  1. TIRAGOLUMAB [Suspect]
     Active Substance: TIRAGOLUMAB
     Indication: Non-small cell lung cancer metastatic
     Dosage: MOST RECENT DOSE OF STUDY DRUG PRIOR TO ADVERSE EVENT RECEIVED ON 23/MAR/2023
     Route: 042
     Dates: start: 20221129
  2. ATEZOLIZUMAB [Suspect]
     Active Substance: ATEZOLIZUMAB
     Indication: Non-small cell lung cancer metastatic
     Dosage: MOST RECENT DOSE OF STUDY DRUG PRIOR TO ADVERSE EVENT RECEIVED ON 23/MAR/2023
     Route: 041
     Dates: start: 20221129
  3. CISPLATIN [Suspect]
     Active Substance: CISPLATIN
     Indication: Non-small cell lung cancer metastatic
     Dosage: MOST RECENT DOSE OF STUDY DRUG PRIOR TO ADVERSE EVENT RECEIVED ON 31/JAN/2023 AT 118 MG
     Route: 042
     Dates: start: 20221129
  4. PEMETREXED [Suspect]
     Active Substance: PEMETREXED
     Indication: Non-small cell lung cancer metastatic
     Dosage: MOST RECENT DOSE 745 MG OF STUDY DRUG PRIOR TO ADVERSE EVENT RECEIVED ON 23/MAR/2023
     Route: 042
     Dates: start: 20221129
  5. HIPERSAR [Concomitant]
     Indication: Hypertension
     Dates: start: 2007
  6. BISOPROLOL FUMARATE [Concomitant]
     Active Substance: BISOPROLOL FUMARATE
     Indication: Arrhythmia
     Dates: start: 2021
  7. FENOFIBRATE [Concomitant]
     Active Substance: FENOFIBRATE
     Indication: Blood cholesterol
     Dates: start: 2007
  8. CALCIMAX D3 [Concomitant]
     Indication: Bone operation
     Dates: start: 2012
  9. OXOLAMINE [Concomitant]
     Active Substance: OXOLAMINE
     Indication: Cough
     Route: 048
     Dates: start: 20221201
  10. DEXAMETHASONE [Concomitant]
     Active Substance: DEXAMETHASONE
     Dates: start: 20221129
  11. FOLIC ACID [Concomitant]
     Active Substance: FOLIC ACID
     Dates: start: 20221129
  12. PHENIRAMINE [Concomitant]
     Active Substance: PHENIRAMINE
     Indication: Premedication
     Dates: start: 20221129
  13. SIPRAKTIN [Concomitant]
     Indication: Decreased appetite
     Dates: start: 20230131
  14. ORALAC [Concomitant]
     Indication: Constipation
     Dates: start: 20230131
  15. MAGNORM [Concomitant]
     Indication: Blood magnesium decreased
     Dates: start: 20230220

REACTIONS (1)
  - General physical condition abnormal [Fatal]

NARRATIVE: CASE EVENT DATE: 20230519
